FAERS Safety Report 7740960-4 (Version None)
Quarter: 2011Q3

REPORT INFORMATION
  Report Type: 
  Country: None (occurrence: None)
  Receive Date: 20110909
  Receipt Date: 20110907
  Transmission Date: 20111222
  Serious: Yes (Hospitalization, Other)
  Sender: FDA-Public Use
  Company Number: US-PFIZER INC-2011145111

PATIENT
  Sex: Male

DRUGS (7)
  1. CHANTIX [Suspect]
     Dosage: 1 MG, UNK
     Dates: start: 20080201, end: 20080401
  2. PLAVIX [Concomitant]
     Indication: CORONARY ARTERY DISEASE
     Dosage: UNK
     Dates: start: 20040101, end: 20090616
  3. PRILOSEC [Concomitant]
     Indication: GASTROOESOPHAGEAL REFLUX DISEASE
     Dosage: UNK
     Dates: start: 20050101, end: 20090616
  4. CHANTIX [Suspect]
     Dosage: 1 MG, UNK
     Dates: start: 20070201, end: 20070301
  5. CRESTOR [Concomitant]
     Indication: DIABETES MELLITUS
     Dosage: UNK
     Dates: start: 20040201, end: 20090616
  6. CHANTIX [Suspect]
     Indication: SMOKING CESSATION THERAPY
     Dosage: UNK
     Dates: start: 20060101
  7. TOPROL-XL [Concomitant]
     Indication: HYPERTENSION
     Dosage: UNK
     Dates: start: 20040201, end: 20090616

REACTIONS (11)
  - DEPRESSION [None]
  - VISION BLURRED [None]
  - LOSS OF CONSCIOUSNESS [None]
  - IMPAIRED DRIVING ABILITY [None]
  - EMOTIONAL DISTRESS [None]
  - INJURY [None]
  - CONDITION AGGRAVATED [None]
  - ADVERSE DRUG REACTION [None]
  - SUICIDAL BEHAVIOUR [None]
  - ANXIETY [None]
  - MENTAL DISORDER [None]
